FAERS Safety Report 24857945 (Version 3)
Quarter: 2025Q3

REPORT INFORMATION
  Report Type: Report from Study
  Country: JP (occurrence: JP)
  Receive Date: 20250117
  Receipt Date: 20250929
  Transmission Date: 20251021
  Serious: Yes (Other)
  Sender: ALEXION PHARMACEUTICALS
  Company Number: JP-ASTRAZENECA-230009434_011820_P_1

PATIENT
  Age: 8 Year
  Sex: Male
  Weight: 24.6 kg

DRUGS (9)
  1. KOSELUGO [Suspect]
     Active Substance: SELUMETINIB
     Indication: Neurofibroma
     Dates: start: 20230117, end: 20230630
  2. KOSELUGO [Suspect]
     Active Substance: SELUMETINIB
     Dates: start: 20230707, end: 20230906
  3. KOSELUGO [Suspect]
     Active Substance: SELUMETINIB
     Dates: start: 20230907, end: 20231004
  4. KOSELUGO [Suspect]
     Active Substance: SELUMETINIB
     Dates: start: 20231025, end: 20231128
  5. KOSELUGO [Suspect]
     Active Substance: SELUMETINIB
     Dates: start: 20231129, end: 20241105
  6. KOSELUGO [Suspect]
     Active Substance: SELUMETINIB
  7. NAUZELIN [Concomitant]
     Active Substance: DOMPERIDONE
     Indication: Prophylaxis
  8. DIETARY SUPPLEMENT\PROBIOTICS [Concomitant]
     Active Substance: DIETARY SUPPLEMENT\PROBIOTICS NOS
     Indication: Prophylaxis
  9. DOMPERIDONE [Concomitant]
     Active Substance: DOMPERIDONE
     Dosage: 10 MILLIGRAM, QD
     Route: 065
     Dates: start: 20230609

REACTIONS (8)
  - Blood creatine phosphokinase increased [Recovered/Resolved]
  - Eructation [Recovering/Resolving]
  - Epistaxis [Recovered/Resolved]
  - Product dose omission issue [Unknown]
  - Diarrhoea [Recovering/Resolving]
  - Vomiting [Recovering/Resolving]
  - Chills [Unknown]
  - Neurofibroma [Not Recovered/Not Resolved]

NARRATIVE: CASE EVENT DATE: 20230127
